FAERS Safety Report 9699542 (Version 1)
Quarter: 2013Q4

REPORT INFORMATION
  Report Type: Spontaneous
  Country: US (occurrence: US)
  Receive Date: 20131120
  Receipt Date: 20131120
  Transmission Date: 20140711
  Serious: Yes (Hospitalization, Disabling)
  Sender: FDA-Public Use
  Company Number: US-MYLANLABS-2013S1025439

PATIENT
  Age: 35 Year
  Sex: Male

DRUGS (1)
  1. METHOTREXATE [Suspect]
     Indication: ACUTE MYELOID LEUKAEMIA RECURRENT
     Route: 037

REACTIONS (1)
  - Guillain-Barre syndrome [Recovering/Resolving]
